FAERS Safety Report 8073680-X (Version None)
Quarter: 2012Q1

REPORT INFORMATION
  Report Type: 
  Country: None (occurrence: None)
  Receive Date: 20120126
  Receipt Date: 20120119
  Transmission Date: 20120608
  Serious: Yes (Other)
  Sender: FDA-Public Use
  Company Number: US-PFIZER INC-2012016786

PATIENT
  Sex: Male
  Weight: 113.38 kg

DRUGS (3)
  1. BENEFIX [Suspect]
     Dosage: 4000 IU, 3 TIMES A WEEK
  2. AMOXICILLIN [Suspect]
     Indication: EAR INFECTION
     Dosage: 500 MG, 3X/DAY
  3. BENEFIX [Suspect]
     Indication: FACTOR IX DEFICIENCY
     Dosage: UNK

REACTIONS (2)
  - EAR INFECTION [None]
  - DRUG INEFFECTIVE [None]
